FAERS Safety Report 25724021 (Version 1)
Quarter: 2025Q3

REPORT INFORMATION
  Report Type: Spontaneous
  Country: JP (occurrence: JP)
  Receive Date: 20250826
  Receipt Date: 20250826
  Transmission Date: 20251020
  Serious: Yes (Hospitalization, Other)
  Sender: ALEXION PHARMACEUTICALS
  Company Number: JP-ASTRAZENECA-202508JPN017074JP

PATIENT
  Age: 86 Year
  Sex: Male

DRUGS (1)
  1. DAPAGLIFLOZIN [Suspect]
     Active Substance: DAPAGLIFLOZIN
     Indication: Cardiac failure

REACTIONS (5)
  - Euglycaemic diabetic ketoacidosis [Unknown]
  - Asthenia [Unknown]
  - Pneumonia [Unknown]
  - Infection [Unknown]
  - Pancreatitis chronic [Unknown]
